FAERS Safety Report 13400478 (Version 1)
Quarter: 2017Q2

REPORT INFORMATION
  Report Type: Spontaneous
  Country: US (occurrence: US)
  Receive Date: 20170404
  Receipt Date: 20170404
  Transmission Date: 20170830
  Serious: No
  Sender: FDA-Public Use
  Company Number: US-MYLANLABS-2016M1055322

PATIENT
  Age: 67 Year
  Sex: Female

DRUGS (11)
  1. DOXYCYCLINE HYCLATE DELAYED-RELEASE TABLETS, USP [Suspect]
     Active Substance: DOXYCYCLINE HYCLATE
     Indication: THROAT LESION
  2. DOXYCYCLINE HYCLATE DELAYED-RELEASE TABLETS, USP [Suspect]
     Active Substance: DOXYCYCLINE HYCLATE
     Indication: SKIN DISORDER
     Dosage: 100 MG, QD
     Route: 048
     Dates: start: 20161130
  3. DOXYCYCLINE HYCLATE DELAYED-RELEASE TABLETS, USP [Suspect]
     Active Substance: DOXYCYCLINE HYCLATE
     Indication: OROPHARYNGEAL BLISTERING
  4. DOXYCYCLINE HYCLATE DELAYED-RELEASE TABLETS, USP [Suspect]
     Active Substance: DOXYCYCLINE HYCLATE
     Indication: AUTOIMMUNE DISORDER
  5. CELLCEPT [Concomitant]
     Active Substance: MYCOPHENOLATE MOFETIL\MYCOPHENOLATE MOFETIL HYDROCHLORIDE
     Indication: ORAL MUCOSAL BLISTERING
  6. CELLCEPT [Concomitant]
     Active Substance: MYCOPHENOLATE MOFETIL\MYCOPHENOLATE MOFETIL HYDROCHLORIDE
     Indication: OROPHARYNGEAL BLISTERING
  7. DOXYCYCLINE HYCLATE DELAYED-RELEASE TABLETS, USP [Suspect]
     Active Substance: DOXYCYCLINE HYCLATE
     Indication: ORAL MUCOSAL BLISTERING
  8. CELLCEPT [Concomitant]
     Active Substance: MYCOPHENOLATE MOFETIL\MYCOPHENOLATE MOFETIL HYDROCHLORIDE
     Indication: THROAT LESION
  9. CELLCEPT [Concomitant]
     Active Substance: MYCOPHENOLATE MOFETIL\MYCOPHENOLATE MOFETIL HYDROCHLORIDE
     Indication: STOMATITIS
  10. DOXYCYCLINE HYCLATE DELAYED-RELEASE TABLETS, USP [Suspect]
     Active Substance: DOXYCYCLINE HYCLATE
     Indication: STOMATITIS
  11. CELLCEPT [Concomitant]
     Active Substance: MYCOPHENOLATE MOFETIL\MYCOPHENOLATE MOFETIL HYDROCHLORIDE
     Indication: AUTOIMMUNE DISORDER
     Dosage: UNK

REACTIONS (6)
  - Wrong technique in product usage process [None]
  - Foreign body [Recovered/Resolved]
  - Nausea [None]
  - Choking [None]
  - Product use complaint [None]
  - Pain in extremity [None]

NARRATIVE: CASE EVENT DATE: 20161210
